FAERS Safety Report 14345739 (Version 1)
Quarter: 2018Q1

REPORT INFORMATION
  Report Type: Spontaneous
  Country: US (occurrence: US)
  Receive Date: 20180102
  Receipt Date: 20180102
  Transmission Date: 20180509
  Serious: Yes (Other)
  Sender: FDA-Public Use
  Company Number: None

PATIENT
  Age: 75 Year
  Sex: Female
  Weight: 61.23 kg

DRUGS (3)
  1. LEVOTHYROXINE. [Concomitant]
     Active Substance: LEVOTHYROXINE
  2. MULTIVITAMIN/CALCIUM-VIT D [Concomitant]
  3. DILTIAZEM. [Suspect]
     Active Substance: DILTIAZEM
     Indication: HYPERTENSION
     Route: 048
     Dates: start: 20171005, end: 20171019

REACTIONS (5)
  - Hypersomnia [None]
  - Rash erythematous [None]
  - Pain [None]
  - Skin swelling [None]
  - Rash [None]

NARRATIVE: CASE EVENT DATE: 20171018
